FAERS Safety Report 6669492-1 (Version None)
Quarter: 2010Q2

REPORT INFORMATION
  Report Type: 
  Country: None (occurrence: None)
  Receive Date: 20100406
  Receipt Date: 20100329
  Transmission Date: 20101027
  Serious: Yes (Hospitalization)
  Sender: FDA-Public Use
  Company Number: PHHY2010FR19810

PATIENT
  Age: 70 Year

DRUGS (1)
  1. RASILEZ [Suspect]

REACTIONS (1)
  - DERMATITIS ALLERGIC [None]
